FAERS Safety Report 8956697 (Version 1)
Quarter: 2012Q4

REPORT INFORMATION
  Report Type: Spontaneous
  Country: DE (occurrence: None)
  Receive Date: 20121128
  Receipt Date: 20121128
  Transmission Date: 20130627
  Serious: Yes (Hospitalization, Other)
  Sender: FDA-Public Use
  Company Number: GER/GER/12/0026766

PATIENT
  Age: 0 Year
  Sex: Male
  Weight: 3.5 kg

DRUGS (2)
  1. CITALOPRAM (CITALOPRAM) [Suspect]
     Indication: DRUG USE FOR UNKNOWN INDICATION
     Route: 064
     Dates: start: 20090829, end: 20100806
  2. FEMIBION [Concomitant]

REACTIONS (8)
  - Neonatal respiratory distress syndrome [None]
  - Hypoglycaemia neonatal [None]
  - Developmental delay [None]
  - Caesarean section [None]
  - Foetal heart rate deceleration [None]
  - Agitation [None]
  - Oxygen saturation decreased [None]
  - Maternal drugs affecting foetus [None]
